FAERS Safety Report 6151934-1 (Version None)
Quarter: 2009Q2

REPORT INFORMATION
  Report Type: 
  Country: None (occurrence: None)
  Receive Date: 20090410
  Receipt Date: 20090409
  Transmission Date: 20091009
  Serious: Yes (Disabling, Other)
  Sender: FDA-Public Use
  Company Number: PT-B.I. PHARMACEUTICALS,INC./RIDGEFIELD-2009-BP-03146YA

PATIENT
  Sex: Male
  Weight: 91 kg

DRUGS (5)
  1. OMNIC [Suspect]
     Indication: BENIGN PROSTATIC HYPERPLASIA
     Route: 048
     Dates: start: 20081001, end: 20081204
  2. ALLOPURINOL [Concomitant]
     Indication: GLAUCOMA
  3. DILTIAZEM HYDROCHLORIDE [Concomitant]
     Indication: GLAUCOMA
  4. COSOPT (TIMOLOL + DOXAZOLAMIDE) [Concomitant]
     Indication: GLAUCOMA
  5. TRAVATAN [Concomitant]
     Indication: GLAUCOMA

REACTIONS (1)
  - OCULAR HYPERTENSION [None]
